FAERS Safety Report 8890573 (Version 5)
Quarter: 2014Q1

REPORT INFORMATION
  Report Type: Spontaneous
  Country: BR (occurrence: BR)
  Receive Date: 20121107
  Receipt Date: 20140310
  Transmission Date: 20141002
  Serious: Yes (Other)
  Sender: FDA-Public Use
  Company Number: BR-ROCHE-1149882

PATIENT
  Age: 75 Year
  Sex: Female
  Weight: 78 kg

DRUGS (10)
  1. AVASTIN [Suspect]
     Indication: METASTASES TO LUNG
     Route: 065
     Dates: start: 201208
  2. TRAMADOL [Suspect]
     Indication: PRODUCT USED FOR UNKNOWN INDICATION
     Route: 065
  3. XELODA [Suspect]
     Indication: METASTASES TO LUNG
     Route: 065
     Dates: start: 2010
  4. TAXOL [Concomitant]
     Indication: METASTASES TO LUNG
     Route: 065
     Dates: start: 201208, end: 201302
  5. TAMOXIFEN [Concomitant]
     Route: 065
  6. EVEROLIMUS [Concomitant]
     Route: 065
  7. PANTOPRAZOLE [Concomitant]
     Indication: GASTRITIS
     Route: 065
  8. ROSUVASTATIN [Concomitant]
     Route: 065
  9. ASPIRIN [Concomitant]
     Indication: CORONARY ARTERY DISEASE
     Route: 065
  10. PURAN T4 [Concomitant]
     Indication: HYPOTHYROIDISM
     Route: 065

REACTIONS (9)
  - Urinary tract infection [Recovered/Resolved]
  - Toxic encephalopathy [Recovered/Resolved]
  - Illusion [Unknown]
  - Dehydration [Recovered/Resolved]
  - Anal ulcer [Recovered/Resolved]
  - Anal fistula [Recovered/Resolved]
  - Drug ineffective [Unknown]
  - Gingivitis [Recovering/Resolving]
  - Gingivitis [Recovering/Resolving]
